FAERS Safety Report 11404540 (Version 2)
Quarter: 2015Q3

REPORT INFORMATION
  Report Type: Not Available
  Country: PT (occurrence: PT)
  Receive Date: 20150821
  Receipt Date: 20150908
  Transmission Date: 20151125
  Serious: Yes (Other)
  Sender: FDA-Public Use
  Company Number: PT-MUNDIPHARMA DS AND PHARMACOVIGILANCE-GBR-2015-0030323

PATIENT
  Age: 55 Year
  Sex: Female
  Weight: 92 kg

DRUGS (1)
  1. TARGIN PR TABLET [Suspect]
     Active Substance: NALOXONE HYDROCHLORIDE\OXYCODONE HYDROCHLORIDE
     Indication: TENDONITIS
     Dosage: 5/2.5 MG, Q12H
     Route: 048
     Dates: start: 20150610, end: 20150619

REACTIONS (1)
  - Postmenopausal haemorrhage [Recovered/Resolved]

NARRATIVE: CASE EVENT DATE: 20150619
